FAERS Safety Report 19928291 (Version 1)
Quarter: 2021Q4

REPORT INFORMATION
  Report Type: Spontaneous
  Country: US (occurrence: US)
  Receive Date: 20211006
  Receipt Date: 20211006
  Transmission Date: 20220303
  Serious: Yes (Other)
  Sender: FDA-Public Use
  Company Number: None

PATIENT
  Age: 22 Year
  Sex: Female
  Weight: 57 kg

DRUGS (2)
  1. INJECTAFER [Suspect]
     Active Substance: FERRIC CARBOXYMALTOSE
     Indication: Product used for unknown indication
     Dosage: ?          OTHER FREQUENCY:X2, 7 DAYS APART;
     Route: 042
     Dates: start: 20210928, end: 20210928
  2. 0.9% NS [Concomitant]
     Dates: start: 20210928, end: 20210928

REACTIONS (2)
  - Hypophosphataemia [None]
  - Drug hypersensitivity [None]

NARRATIVE: CASE EVENT DATE: 20210928
